FAERS Safety Report 10177657 (Version 2)
Quarter: 2014Q3

REPORT INFORMATION
  Report Type: Spontaneous
  Country: US (occurrence: US)
  Receive Date: 20140516
  Receipt Date: 20140814
  Transmission Date: 20150326
  Serious: Yes (Other)
  Sender: FDA-Public Use
  Company Number: US-ASTRAZENECA-2014SE31765

PATIENT
  Sex: Female
  Weight: 45.4 kg

DRUGS (2)
  1. PRILOSEC OTC [Suspect]
     Active Substance: OMEPRAZOLE MAGNESIUM
     Indication: GASTROOESOPHAGEAL REFLUX DISEASE
     Dosage: DAILY
     Route: 048
  2. NEXIUM [Concomitant]
     Active Substance: ESOMEPRAZOLE MAGNESIUM
     Route: 048

REACTIONS (13)
  - Throat cancer [Unknown]
  - Restless legs syndrome [Unknown]
  - Weight decreased [Unknown]
  - Anxiety [Unknown]
  - Brain abscess [Unknown]
  - Gastrooesophageal reflux disease [Unknown]
  - Depression [Unknown]
  - Dizziness [Unknown]
  - Drug ineffective [Unknown]
  - Gastric ulcer [Unknown]
  - Vulval cancer [Unknown]
  - Dyspepsia [Unknown]
  - Malaise [Unknown]
